FAERS Safety Report 9617720 (Version 2)
Quarter: 2013Q4

REPORT INFORMATION
  Report Type: Spontaneous
  Country: DK (occurrence: DE)
  Receive Date: 20131011
  Receipt Date: 20131011
  Transmission Date: 20140711
  Serious: Yes (Other)
  Sender: FDA-Public Use
  Company Number: DE-FRI-1000046715

PATIENT
  Age: 39 Year
  Sex: Female

DRUGS (6)
  1. CITALOPRAM [Suspect]
     Indication: ANXIETY DISORDER
     Dosage: 1 DF
     Route: 048
  2. KATADOLON [Suspect]
     Indication: RHEUMATIC DISORDER
     Dosage: 100-200 MG
  3. KATADOLON [Suspect]
     Indication: OSTEOARTHRITIS
  4. TILIDIN [Suspect]
     Indication: ARTHROPATHY
     Dosage: 0.1429 DF
     Route: 048
  5. PANTOPRAZOL [Concomitant]
     Indication: DYSPEPSIA
     Dosage: 5.7143 MG
  6. DIAZEPAM [Concomitant]
     Dosage: 8.5714 MG
     Route: 048

REACTIONS (5)
  - Placental insufficiency [Unknown]
  - Foetal monitoring abnormal [Unknown]
  - Gastroenteritis [Unknown]
  - Caesarean section [Unknown]
  - Pregnancy [Recovered/Resolved]
